FAERS Safety Report 18996441 (Version 1)
Quarter: 2021Q1

REPORT INFORMATION
  Report Type: Spontaneous
  Country: US (occurrence: US)
  Receive Date: 20210310
  Receipt Date: 20210310
  Transmission Date: 20210420
  Serious: Yes (Other)
  Sender: FDA-Public Use
  Company Number: None

PATIENT
  Age: 90 Year
  Sex: Female
  Weight: 63 kg

DRUGS (6)
  1. AMLODIPINE [Concomitant]
     Active Substance: AMLODIPINE BESYLATE
  2. MIRALAX [Concomitant]
     Active Substance: POLYETHYLENE GLYCOL 3350
  3. FIBER GUMMIES [Concomitant]
     Active Substance: DIETARY SUPPLEMENT
  4. CEPHALEXIN 500 MG [Suspect]
     Active Substance: CEPHALEXIN
     Indication: FUNGAL INFECTION
     Dosage: ?          QUANTITY:30 CAPSULE(S);?
     Route: 048
     Dates: start: 20201101, end: 20201108
  5. VITAMIN B12 [Concomitant]
     Active Substance: CYANOCOBALAMIN
  6. PREGABLIN [Concomitant]
     Active Substance: PREGABALIN

REACTIONS (7)
  - Flatulence [None]
  - Abdominal distension [None]
  - Irritable bowel syndrome [None]
  - Abdominal pain lower [None]
  - Diarrhoea [None]
  - Abdominal pain [None]
  - Drug ineffective [None]

NARRATIVE: CASE EVENT DATE: 20201112
